FAERS Safety Report 9337575 (Version 1)
Quarter: 2013Q2

REPORT INFORMATION
  Report Type: Spontaneous
  Country: US (occurrence: US)
  Receive Date: 20130607
  Receipt Date: 20130607
  Transmission Date: 20140414
  Serious: No
  Sender: FDA-Public Use
  Company Number: US-009507513-1305USA018037

PATIENT
  Sex: Female

DRUGS (1)
  1. COZAAR [Suspect]

REACTIONS (2)
  - Adverse drug reaction [Unknown]
  - Hypersensitivity [Unknown]
